FAERS Safety Report 8882055 (Version 1)
Quarter: 2012Q4

REPORT INFORMATION
  Report Type: Spontaneous
  Country: US (occurrence: None)
  Receive Date: 20121105
  Receipt Date: 20121105
  Transmission Date: 20130627
  Serious: Yes (Other)
  Sender: FDA-Public Use
  Company Number: None

PATIENT
  Age: 56 Year
  Sex: Male

DRUGS (1)
  1. CARDIOPLEGIA SOLUTION [Suspect]

REACTIONS (7)
  - Scab [None]
  - Vomiting [None]
  - Oedema peripheral [None]
  - Spinal disorder [None]
  - Inflammation [None]
  - Swelling [None]
  - Erythema [None]
